FAERS Safety Report 23717407 (Version 1)
Quarter: 2024Q2

REPORT INFORMATION
  Report Type: Report from Study
  Country: IT (occurrence: IT)
  Receive Date: 20240408
  Receipt Date: 20240408
  Transmission Date: 20240716
  Serious: Yes (Other)
  Sender: FDA-Public Use
  Company Number: IT-CELLTRION INC.-2024IT008199

PATIENT

DRUGS (2)
  1. TRASTUZUMAB [Suspect]
     Active Substance: TRASTUZUMAB
     Indication: Triple positive breast cancer
     Dosage: LAST LINE TREATMENT, AFTER 11 YEARS BY DIAGNOSIS PACLITAXEL + TRASTUZUMAB FOR TWELVE CYCLES.
     Dates: start: 2020
  2. PACLITAXEL [Suspect]
     Active Substance: PACLITAXEL
     Indication: Triple positive breast cancer
     Dosage: LAST LINE TREATMENT, AFTER 11 YEARS BY DIAGNOSIS PACLITAXEL + TRASTUZUMAB FOR TWELVE CYCLES.
     Dates: start: 2020

REACTIONS (1)
  - Cardiotoxicity [Unknown]

NARRATIVE: CASE EVENT DATE: 20100101
